FAERS Safety Report 7589629-X (Version None)
Quarter: 2011Q3

REPORT INFORMATION
  Report Type: 
  Country: None (occurrence: None)
  Receive Date: 20110705
  Receipt Date: 20110628
  Transmission Date: 20111222
  Serious: Yes (Other)
  Sender: FDA-Public Use
  Company Number: IT-PFIZER INC-2011145907

PATIENT
  Age: 67 Year
  Sex: Male

DRUGS (3)
  1. ATORVASTATIN CALCIUM [Suspect]
     Dosage: 20 MG, DAILY
     Route: 048
     Dates: start: 20101001, end: 20110601
  2. CARDIOASPIRINA [Concomitant]
  3. METFORAL [Concomitant]
     Dosage: 1000 MG, DAILY

REACTIONS (1)
  - EAR INFECTION [None]
